FAERS Safety Report 8887141 (Version 1)
Quarter: 2012Q4

REPORT INFORMATION
  Report Type: 
  Country: GB (occurrence: GB)
  Receive Date: 20121105
  Receipt Date: 20121105
  Transmission Date: 20130627
  Serious: Yes (Hospitalization)
  Sender: FDA-Public Use
  Company Number: GB-ROCHE-1151242

PATIENT
  Age: 41 Year
  Sex: Female
  Weight: 72 kg

DRUGS (4)
  1. KETOROLAC [Suspect]
     Indication: ANALGESIC THERAPY
     Route: 042
     Dates: start: 20120911, end: 20120911
  2. MIDAZOLAM [Concomitant]
     Route: 065
  3. PROPOFOL [Concomitant]
     Route: 065
  4. REMIFENTANIL [Concomitant]
     Route: 065

REACTIONS (3)
  - Aggression [Recovered/Resolved]
  - Confusional state [Recovered/Resolved]
  - Hallucination [Recovered/Resolved]
